FAERS Safety Report 8850473 (Version 2)
Quarter: 2012Q4

REPORT INFORMATION
  Report Type: Report from Study
  Country: US (occurrence: US)
  Receive Date: 20121019
  Receipt Date: 20121026
  Transmission Date: 20130627
  Serious: Yes (Other)
  Sender: FDA-Public Use
  Company Number: US-009507513-1210USA007818

PATIENT
  Age: 0 Year
  Sex: Female
  Weight: 85.3 kg

DRUGS (10)
  1. SIMVASTATIN [Suspect]
     Indication: ACUTE CORONARY SYNDROME
     Dosage: UNK
     Route: 048
     Dates: start: 20090922
  2. OMEPRAZOLE [Concomitant]
     Dosage: UNK
     Route: 048
     Dates: start: 20111026
  3. PLAVIX [Concomitant]
     Dosage: 75 mg, qd
     Route: 048
     Dates: start: 20090921
  4. METOPROLOL [Concomitant]
     Dosage: 100 mg, qd
     Route: 048
     Dates: start: 20090921
  5. LANTUS [Concomitant]
     Dosage: 20 IU, qd
     Route: 058
     Dates: start: 20111026
  6. GABAPENTIN [Concomitant]
     Dosage: 900 mg, qd
     Route: 048
     Dates: start: 20111229
  7. HYDROCHLOROTHIAZIDE [Concomitant]
     Dosage: 25 mg, qd
     Route: 048
     Dates: start: 20100104
  8. METFORMIN [Concomitant]
     Dosage: 2000 mg, qd
     Route: 048
     Dates: start: 20070101
  9. ASPIRIN [Concomitant]
     Dosage: 81 mg, qd
     Route: 048
     Dates: start: 20090921
  10. LISINOPRIL [Concomitant]
     Dosage: 40 mg, qd
     Route: 048
     Dates: start: 20060101

REACTIONS (1)
  - Leiomyosarcoma [Unknown]
